FAERS Safety Report 6011112-3 (Version None)
Quarter: 2008Q4

REPORT INFORMATION
  Report Type: 
  Country: None (occurrence: None)
  Receive Date: 20081218
  Receipt Date: 20081211
  Transmission Date: 20090506
  Serious: Yes (Hospitalization)
  Sender: FDA-Public Use
  Company Number: NL-NOVOPROD-280432

PATIENT
  Age: 80 Year
  Sex: Female

DRUGS (3)
  1. NOVOLOG MIX 70/30 [Suspect]
     Indication: TYPE 2 DIABETES MELLITUS
     Dosage: 11+13 IU
     Dates: start: 20080727
  2. NIFEDIPINE [Concomitant]
     Indication: HYPERTENSION
  3. COAPROVEL [Concomitant]
     Indication: HYPERTENSION

REACTIONS (3)
  - BLOOD GLUCOSE INCREASED [None]
  - DIABETES MELLITUS INADEQUATE CONTROL [None]
  - HEART VALVE INCOMPETENCE [None]
